FAERS Safety Report 5075124-9 (Version None)
Quarter: 2006Q3

REPORT INFORMATION
  Report Type: 
  Country: None (occurrence: None)
  Receive Date: 20060809
  Receipt Date: 20050919
  Transmission Date: 20061208
  Serious: Yes (Hospitalization)
  Sender: FDA-Public Use
  Company Number: US-AMGEN-US151087

PATIENT
  Sex: Female
  Weight: 88.8 kg

DRUGS (3)
  1. EPOGEN [Suspect]
     Indication: DIALYSIS
     Dates: start: 20041101
  2. CALCITRIOL [Concomitant]
     Dates: end: 20050901
  3. BLOOD CELLS, PACKED HUMAN [Concomitant]
     Dates: start: 20050901

REACTIONS (1)
  - HAEMOGLOBIN DECREASED [None]
